FAERS Safety Report 7942463-0 (Version None)
Quarter: 2011Q4

REPORT INFORMATION
  Report Type: 
  Country: None (occurrence: None)
  Receive Date: 20111128
  Receipt Date: 20111117
  Transmission Date: 20120403
  Serious: Yes (Other)
  Sender: FDA-Public Use
  Company Number: CA-GLAXOSMITHKLINE-A0933345A

PATIENT
  Sex: Female
  Weight: 77.3 kg

DRUGS (4)
  1. SPIRIVA [Suspect]
     Indication: CHRONIC OBSTRUCTIVE PULMONARY DISEASE
     Route: 065
  2. ADVAIR DISKUS 100/50 [Suspect]
     Indication: CHRONIC OBSTRUCTIVE PULMONARY DISEASE
     Dosage: 1PUFF TWICE PER DAY
     Route: 055
     Dates: start: 20080101
  3. VENTOLIN [Concomitant]
  4. MORPHINE [Concomitant]

REACTIONS (7)
  - ARTHRITIS [None]
  - DYSPNOEA [None]
  - CONDITION AGGRAVATED [None]
  - CANDIDIASIS [None]
  - MYOCARDIAL INFARCTION [None]
  - COUGH [None]
  - CHEST PAIN [None]
